FAERS Safety Report 17326332 (Version 1)
Quarter: 2020Q1

REPORT INFORMATION
  Report Type: Spontaneous
  Country: FR (occurrence: FR)
  Receive Date: 20200127
  Receipt Date: 20200127
  Transmission Date: 20200409
  Serious: Yes (Hospitalization)
  Sender: FDA-Public Use
  Company Number: FR-MYLANLABS-2020M1008277

PATIENT
  Age: 1 Day
  Sex: Male

DRUGS (1)
  1. BUPRENORPHINE. [Suspect]
     Active Substance: BUPRENORPHINE
     Indication: PRODUCT USED FOR UNKNOWN INDICATION
     Dosage: 1.4 MILLIGRAM, QD
     Route: 064
     Dates: start: 201901

REACTIONS (4)
  - Exposure during pregnancy [Recovered/Resolved]
  - Low birth weight baby [Recovering/Resolving]
  - Withdrawal syndrome [Recovered/Resolved]
  - Foetal growth restriction [Recovered/Resolved]

NARRATIVE: CASE EVENT DATE: 201901
